FAERS Safety Report 9659923 (Version 1)
Quarter: 2013Q4

REPORT INFORMATION
  Report Type: Spontaneous
  Country: JP (occurrence: JP)
  Receive Date: 20131031
  Receipt Date: 20131031
  Transmission Date: 20140711
  Serious: Yes (Hospitalization)
  Sender: FDA-Public Use
  Company Number: JP-TAKEDA-2013TEU001759

PATIENT
  Age: 73 Year
  Sex: Male

DRUGS (1)
  1. TACHOSIL [Suspect]
     Indication: PROPHYLAXIS
     Dosage: 1 SHEET /1DAY
     Dates: start: 20130626

REACTIONS (1)
  - Post procedural bile leak [Recovering/Resolving]
